FAERS Safety Report 4598891-7 (Version None)
Quarter: 2005Q1

REPORT INFORMATION
  Report Type: 
  Country: None (occurrence: None)
  Receive Date: 20050302
  Receipt Date: 20050218
  Transmission Date: 20050727
  Serious: Yes (Hospitalization)
  Sender: FDA-Public Use
  Company Number: S05-USA-00558-01

PATIENT
  Age: 52 Year
  Sex: Male

DRUGS (8)
  1. LEXAPRO [Suspect]
     Indication: DEPRESSION
     Dosage: 10 MG QD PO
     Route: 048
     Dates: start: 20040801
  2. ARICEPT [Suspect]
     Indication: DEMENTIA ALZHEIMER'S TYPE
     Dosage: 5 MG QD
  3. LITHIUM [Concomitant]
  4. VALIUM [Concomitant]
  5. SOMA [Concomitant]
  6. PERCOCET [Concomitant]
  7. PREVACID [Concomitant]
  8. REMERON [Concomitant]

REACTIONS (10)
  - CORONARY ARTERY DISEASE [None]
  - FEELING COLD [None]
  - GAIT DISTURBANCE [None]
  - HYPERHIDROSIS [None]
  - INTENTIONAL SELF-INJURY [None]
  - OVERDOSE [None]
  - PERSONALITY CHANGE [None]
  - SUICIDAL IDEATION [None]
  - SUICIDE ATTEMPT [None]
  - WEIGHT DECREASED [None]
